FAERS Safety Report 11668799 (Version 1)
Quarter: 2015Q4

REPORT INFORMATION
  Report Type: Spontaneous
  Country: CH (occurrence: CH)
  Receive Date: 20151027
  Receipt Date: 20151027
  Transmission Date: 20160304
  Serious: Yes (Hospitalization)
  Sender: FDA-Public Use
  Company Number: CH-009507513-1510CHE010337

PATIENT
  Age: 71 Year
  Sex: Female

DRUGS (3)
  1. PROPOFOL. [Suspect]
     Active Substance: PROPOFOL
     Indication: INDUCTION OF ANAESTHESIA
     Dosage: UNK
     Dates: start: 20140608, end: 20140608
  2. ESMERON [Suspect]
     Active Substance: ROCURONIUM BROMIDE
     Indication: INDUCTION OF ANAESTHESIA
     Dosage: UNK
     Dates: start: 20140608, end: 20140608
  3. KEFZOL [Suspect]
     Active Substance: CEFAZOLIN SODIUM
     Indication: INDUCTION OF ANAESTHESIA
     Dosage: UNK
     Route: 041
     Dates: start: 20140608, end: 20140608

REACTIONS (4)
  - Anaphylactic shock [Recovered/Resolved]
  - Dermatitis exfoliative [Recovered/Resolved]
  - Anaphylactic reaction [Recovered/Resolved]
  - Haemodynamic instability [Recovered/Resolved]

NARRATIVE: CASE EVENT DATE: 20140608
